FAERS Safety Report 23616032 (Version 1)
Quarter: 2024Q1

REPORT INFORMATION
  Report Type: Report from Study
  Country: US (occurrence: US)
  Receive Date: 20240311
  Receipt Date: 20240311
  Transmission Date: 20240409
  Serious: Yes (Hospitalization)
  Sender: FDA-Public Use
  Company Number: US-ABBVIE-5671088

PATIENT
  Age: 59 Year
  Sex: Male

DRUGS (1)
  1. RINVOQ [Suspect]
     Active Substance: UPADACITINIB
     Indication: Dermatitis atopic
     Dosage: FORM STRENGTH: 15 MILLIGRAM
     Route: 048
     Dates: start: 20230405

REACTIONS (5)
  - Sepsis [Recovered/Resolved]
  - Skin haemorrhage [Unknown]
  - Dermatitis atopic [Unknown]
  - Pain [Unknown]
  - Skin fissures [Unknown]

NARRATIVE: CASE EVENT DATE: 20231219
